FAERS Safety Report 19054439 (Version 3)
Quarter: 2021Q2

REPORT INFORMATION
  Report Type: Spontaneous
  Country: SE (occurrence: SE)
  Receive Date: 20210324
  Receipt Date: 20210427
  Transmission Date: 20210717
  Serious: Yes (Death, Other)
  Sender: FDA-Public Use
  Company Number: SE-BAYER-2021-110069

PATIENT
  Age: 67 Year
  Sex: Male

DRUGS (2)
  1. XOFIGO [Suspect]
     Active Substance: RADIUM RA-223 DICHLORIDE
     Indication: METASTASES TO BONE
     Dosage: UNK
     Dates: start: 20210223, end: 20210223
  2. XOFIGO [Suspect]
     Active Substance: RADIUM RA-223 DICHLORIDE
     Indication: HORMONE-REFRACTORY PROSTATE CANCER
     Dosage: UNK
     Dates: start: 20210126, end: 20210126

REACTIONS (8)
  - Vomiting [None]
  - Hepatomegaly [None]
  - Nausea [None]
  - Diarrhoea [None]
  - Metastases to liver [Fatal]
  - Hepatic failure [Fatal]
  - Fatigue [None]
  - Malaise [None]

NARRATIVE: CASE EVENT DATE: 202102
